FAERS Safety Report 6501745-X (Version None)
Quarter: 2009Q4

REPORT INFORMATION
  Report Type: 
  Country: None (occurrence: None)
  Receive Date: 20091216
  Receipt Date: 20091211
  Transmission Date: 20100525
  Serious: Yes (Hospitalization)
  Sender: FDA-Public Use
  Company Number: IT-BAYER-200942704GPV

PATIENT
  Age: 42 Year
  Sex: Male

DRUGS (2)
  1. ASPIRIN [Suspect]
     Indication: TOOTHACHE
     Dosage: TOTAL DAILY DOSE: 1 DF
     Route: 048
     Dates: start: 20090606, end: 20090606
  2. FLUMOX [Suspect]
     Indication: TOOTHACHE
     Dosage: TOTAL DAILY DOSE: 1 DF
     Route: 048
     Dates: start: 20090606, end: 20090606

REACTIONS (5)
  - ANAPHYLACTIC REACTION [None]
  - CHEST PAIN [None]
  - PRURITUS [None]
  - RASH ERYTHEMATOUS [None]
  - TACHYCARDIA [None]
